FAERS Safety Report 8868785 (Version 1)
Quarter: 2012Q4

REPORT INFORMATION
  Report Type: 
  Country: US (occurrence: US)
  Receive Date: 20121026
  Receipt Date: 20121026
  Transmission Date: 20130627
  Serious: Yes (Other)
  Sender: FDA-Public Use
  Company Number: US-AMGEN-USASP2012047461

PATIENT
  Age: 59 Year
  Sex: Female
  Weight: 74.83 kg

DRUGS (9)
  1. ENBREL [Suspect]
     Indication: PRODUCT USED FOR UNKNOWN INDICATION
     Dosage: 50 mg, qwk
     Route: 058
  2. METHOTREXATE [Concomitant]
     Dosage: 2.5 mg, UNK
  3. NAPROXEN [Concomitant]
     Dosage: 250 mg, UNK
  4. LISINOPRIL [Concomitant]
     Dosage: 10 mg, UNK
  5. HYDROCHLOROTH [Concomitant]
     Dosage: 12.5 mg, UNK
  6. PRILOSEC                           /00661201/ [Concomitant]
     Dosage: 10 mg, UNK
  7. VITAMIN D /00107901/ [Concomitant]
     Dosage: 5000 unit, UNK
  8. CALCIUM +D                         /00188401/ [Concomitant]
     Dosage: UNK
  9. FOLIC ACID [Concomitant]

REACTIONS (2)
  - Sinusitis [Unknown]
  - Tooth fracture [Unknown]
